FAERS Safety Report 8420242-8 (Version None)
Quarter: 2012Q2

REPORT INFORMATION
  Report Type: 
  Country: None (occurrence: None)
  Receive Date: 20120607
  Receipt Date: 20120521
  Transmission Date: 20120825
  Serious: Yes (Other)
  Sender: FDA-Public Use
  Company Number: US-PFIZER INC-2012134618

PATIENT
  Age: 57 Year
  Sex: Male

DRUGS (6)
  1. AMIODARONE HCL [Suspect]
     Indication: ATRIAL FIBRILLATION
     Dosage: UNK
  2. METOPROLOL [Concomitant]
  3. ATENOLOL [Concomitant]
  4. WARFARIN SODIUM [Suspect]
     Indication: PRODUCT USED FOR UNKNOWN INDICATION
     Dosage: UNK
  5. DIGOXIN [Concomitant]
  6. DILTIAZEM [Concomitant]

REACTIONS (5)
  - THERAPEUTIC RESPONSE DECREASED [None]
  - LUNG DISORDER [None]
  - DYSPNOEA [None]
  - GASTROINTESTINAL HAEMORRHAGE [None]
  - INTERNATIONAL NORMALISED RATIO DECREASED [None]
